FAERS Safety Report 6686728-1 (Version None)
Quarter: 2010Q2

REPORT INFORMATION
  Report Type: 
  Country: None (occurrence: None)
  Receive Date: 20100414
  Receipt Date: 20100331
  Transmission Date: 20101027
  Serious: Yes (Other)
  Sender: FDA-Public Use
  Company Number: 232867J10USA

PATIENT
  Age: 30 Year
  Sex: Female

DRUGS (1)
  1. REBIF [Suspect]
     Indication: MULTIPLE SCLEROSIS
     Dosage: 44 MCG, 3 IN 1 WK, SUBCUTANEOUS
     Route: 058
     Dates: start: 20090128, end: 20100228

REACTIONS (8)
  - CHILLS [None]
  - DARK CIRCLES UNDER EYES [None]
  - DEHYDRATION [None]
  - FEELING COLD [None]
  - HYPERHIDROSIS [None]
  - MALAISE [None]
  - PALLOR [None]
  - PALPITATIONS [None]
